FAERS Safety Report 7395908-1 (Version None)
Quarter: 2011Q2

REPORT INFORMATION
  Report Type: 
  Country: None (occurrence: None)
  Receive Date: 20110406
  Receipt Date: 20110324
  Transmission Date: 20111010
  Serious: Yes (Death, Hospitalization)
  Sender: FDA-Public Use
  Company Number: US-BIOGENIDEC-2011BI011214

PATIENT
  Age: 68 Year
  Sex: Female
  Weight: 68 kg

DRUGS (31)
  1. FISH OIL [Concomitant]
  2. FISH OIL [Concomitant]
  3. FOLIC ACID [Concomitant]
     Route: 048
  4. VITAMIN E [Concomitant]
  5. ALLEGRA [Concomitant]
  6. GLUCOSAMINE CHONDROITIN [Concomitant]
  7. MULTI-VITAMINS [Concomitant]
  8. FISH OIL [Concomitant]
  9. NIACIN [Concomitant]
  10. GLUCOSAMINE CHONDROITIN [Concomitant]
  11. VITAMIN B-12 [Concomitant]
  12. CALCIUM PLUS D [Concomitant]
  13. CEPHALEXIN [Concomitant]
     Route: 048
  14. FOCALIN XR [Concomitant]
  15. TUMERIC [Concomitant]
  16. TYSABRI [Suspect]
     Indication: MULTIPLE SCLEROSIS
     Route: 042
     Dates: start: 20090420, end: 20110214
  17. ASPIRIN [Concomitant]
     Route: 048
  18. GLUCOSAMINE CHONDROITIN [Concomitant]
  19. LIPITOR [Concomitant]
     Route: 048
  20. ALENDRONATE [Concomitant]
  21. CALCIUM PLUS D [Concomitant]
  22. LEXAPRO [Concomitant]
     Route: 048
  23. OPCON-A [Concomitant]
  24. AMANTADINE HCL [Concomitant]
  25. CRANBERRY [Concomitant]
     Route: 048
  26. FOSAMAX [Concomitant]
  27. MOBIC [Concomitant]
  28. VITAMIN D [Concomitant]
  29. AUGMENTIN [Concomitant]
  30. EXELON [Concomitant]
     Route: 062
  31. ASCORBIC ACID [Concomitant]

REACTIONS (1)
  - ACUTE RESPIRATORY FAILURE [None]
